FAERS Safety Report 25156826 (Version 1)
Quarter: 2025Q2

REPORT INFORMATION
  Report Type: Spontaneous
  Country: US (occurrence: US)
  Receive Date: 20250403
  Receipt Date: 20250403
  Transmission Date: 20250717
  Serious: No
  Sender: CIPLA
  Company Number: US-CIPLA LTD.-2025US03767

PATIENT

DRUGS (2)
  1. FENOFIBRATE [Suspect]
     Active Substance: FENOFIBRATE
     Indication: Blood cholesterol abnormal
     Dosage: 0.5 DOSAGE FORM, BID
     Route: 048
     Dates: start: 2015
  2. FENOFIBRATE [Suspect]
     Active Substance: FENOFIBRATE
     Dosage: 0.5 DOSAGE FORM, BID
     Route: 048
     Dates: start: 20241022

REACTIONS (3)
  - Product with quality issue administered [Unknown]
  - Product commingling [Unknown]
  - Product physical issue [Unknown]
